FAERS Safety Report 10648570 (Version 1)
Quarter: 2014Q4

REPORT INFORMATION
  Report Type: Spontaneous
  Country: US (occurrence: None)
  Receive Date: 20141205
  Receipt Date: 20141205
  Transmission Date: 20150529
  Serious: No
  Sender: FDA-Public Use
  Company Number: USA-2014101870

PATIENT
  Age: 67 Year
  Sex: Female
  Weight: 73.9 kg

DRUGS (4)
  1. MULTIVITAMINS (ERGOCALCIFEROL, ASCORBIC ACID, FOLIC ACID, THIAMINE HYDROCHLORIDE, RETINOL, RIBOFLAVIN, NICOTINAMIDE, PANTHENOL) [Concomitant]
  2. POMALYST [Suspect]
     Active Substance: POMALIDOMIDE
     Dosage: 1 MG, 21 IN 21 D, PO
     Route: 048
     Dates: start: 20140910
  3. CALCIUM CITRATE (CALCIUM CITRATE) [Concomitant]
  4. LEVONOX (LEVOFLOXACIN HEMIHYDRATE) [Concomitant]

REACTIONS (1)
  - Endodontic procedure [None]

NARRATIVE: CASE EVENT DATE: 2014
